FAERS Safety Report 18942239 (Version 1)
Quarter: 2021Q1

REPORT INFORMATION
  Report Type: Spontaneous
  Country: FI (occurrence: FI)
  Receive Date: 20210225
  Receipt Date: 20210225
  Transmission Date: 20210420
  Serious: Yes (Hospitalization)
  Sender: FDA-Public Use
  Company Number: NVSC2021FI018428

PATIENT
  Age: 55 Year
  Sex: Female
  Weight: 133 kg

DRUGS (17)
  1. TRASTUZUMAB. [Concomitant]
     Active Substance: TRASTUZUMAB
     Indication: BREAST CANCER
     Dosage: 800 MG
     Route: 042
     Dates: start: 20210105, end: 20210105
  2. LAMICTAL [Concomitant]
     Active Substance: LAMOTRIGINE
     Indication: AFFECTIVE DISORDER
     Dosage: 100 MG, (1X2)
     Route: 048
  3. AMLODIPIN [Concomitant]
     Active Substance: AMLODIPINE BESYLATE
     Indication: HYPERTENSION
     Dosage: 10 MG, (1X1)
     Route: 048
  4. PRIMPERAN [Concomitant]
     Active Substance: METOCLOPRAMIDE HYDROCHLORIDE
     Indication: NAUSEA
     Dosage: 10 MG, (1X1?3)
     Route: 048
  5. KYTRIL [Concomitant]
     Active Substance: GRANISETRON HYDROCHLORIDE
     Indication: NAUSEA
     Dosage: 2 MG, QD
     Route: 048
     Dates: start: 20210105, end: 20210105
  6. DEXAMETASON [Concomitant]
     Active Substance: DEXAMETHASONE
     Indication: PRODUCT USED FOR UNKNOWN INDICATION
     Dosage: 4 MG, ACCORDING TO SEPERATE ADVICE
     Route: 048
  7. SOMAC [Concomitant]
     Active Substance: PANTOPRAZOLE SODIUM
     Indication: PRODUCT USED FOR UNKNOWN INDICATION
     Dosage: UNK, (STRENGTH 20 MG)  (1X1) FOR MUCOSAL PROTECTIVE AGENT
     Route: 048
  8. DOCETAXEL. [Suspect]
     Active Substance: DOCETAXEL
     Indication: BREAST CANCER
     Dosage: 160 MG,QD
     Route: 042
     Dates: start: 20201215, end: 20210105
  9. VENLAFAXINE [Concomitant]
     Active Substance: VENLAFAXINE HYDROCHLORIDE
     Indication: ANTIDEPRESSANT THERAPY
     Dosage: 150 MG, (2X1)
     Route: 048
  10. MIRTAZAPINE. [Concomitant]
     Active Substance: MIRTAZAPINE
     Indication: ANTIDEPRESSANT THERAPY
     Dosage: 15 MG, (1.5X1)
     Route: 048
  11. BISOPROLOL [Concomitant]
     Active Substance: BISOPROLOL
     Indication: HYPERTENSION
     Dosage: 5 MG
     Route: 048
  12. LEPONEX [Concomitant]
     Active Substance: CLOZAPINE
     Indication: ANTIDEPRESSANT THERAPY
     Dosage: 100 MG, (1X1)
     Route: 048
  13. ABILIFY [Concomitant]
     Active Substance: ARIPIPRAZOLE
     Indication: PSYCHOTIC DISORDER
     Dosage: UNK (STRENGTH 15 MG)
     Route: 048
  14. TEMESTA [Concomitant]
     Indication: PRODUCT USED FOR UNKNOWN INDICATION
     Dosage: 1 MG, (1X1?2)
     Route: 048
  15. PARACETAMOL + CAFFEINE [Concomitant]
     Active Substance: ACETAMINOPHEN\CAFFEINE
     Indication: ANALGESIC THERAPY
     Dosage: 100 MG, (1X 1?3)
     Route: 048
  16. LOSARTAN AND HYDROCHLOROTHIAZIDE [Concomitant]
     Active Substance: HYDROCHLOROTHIAZIDE\LOSARTAN POTASSIUM
     Indication: HYPERTENSION
     Dosage: UNK, (1X1) (STRENGTH 100 MG/ 25 MG)
     Route: 048
  17. LONQUEX [Concomitant]
     Active Substance: LIPEGFILGRASTIM
     Indication: LEUKOPENIA
     Dosage: UNK, (STRENGTH 6 MG) DOSE ACCORDING TO SEPARATE ADVICE
     Route: 058

REACTIONS (4)
  - Malaise [Recovered/Resolved]
  - Dizziness [Recovered/Resolved]
  - Flushing [Recovered/Resolved]
  - Erythema [Unknown]

NARRATIVE: CASE EVENT DATE: 20210105
